FAERS Safety Report 5943307-9 (Version None)
Quarter: 2008Q4

REPORT INFORMATION
  Report Type: 
  Country: None (occurrence: None)
  Receive Date: 20081106
  Receipt Date: 20081028
  Transmission Date: 20090506
  Serious: Yes (Other)
  Sender: FDA-Public Use
  Company Number: PHHY2008AU26468

PATIENT
  Sex: Female

DRUGS (2)
  1. EXELON [Suspect]
     Dosage: 5 CM2
     Route: 062
  2. EXELON [Suspect]
     Dosage: 10 CM2
     Route: 062

REACTIONS (2)
  - AGITATION [None]
  - DEPRESSION [None]
